FAERS Safety Report 10844959 (Version 1)
Quarter: 2015Q1

REPORT INFORMATION
  Report Type: Report from Study
  Country: US (occurrence: US)
  Receive Date: 20150220
  Receipt Date: 20150220
  Transmission Date: 20150721
  Serious: No
  Sender: FDA-Public Use
  Company Number: US-ABBVIE-14P-163-1292598-00

PATIENT
  Age: 37 Year
  Sex: Male

DRUGS (2)
  1. HUMIRA [Suspect]
     Active Substance: ADALIMUMAB
     Indication: ABDOMINAL DISCOMFORT
     Dosage: TWICE MONTHLY
     Route: 065
     Dates: start: 201403, end: 201407
  2. NSAID^S [Suspect]
     Active Substance: UNSPECIFIED INGREDIENT
     Indication: PRODUCT USED FOR UNKNOWN INDICATION
     Route: 065

REACTIONS (3)
  - Gastric disorder [Recovering/Resolving]
  - Injection site pain [Recovering/Resolving]
  - Drug therapy [Recovering/Resolving]

NARRATIVE: CASE EVENT DATE: 201405
